FAERS Safety Report 9862023 (Version 2)
Quarter: 2014Q1

REPORT INFORMATION
  Report Type: Spontaneous
  Country: US (occurrence: US)
  Receive Date: 20140203
  Receipt Date: 20140221
  Transmission Date: 20141002
  Serious: Yes (Other)
  Sender: FDA-Public Use
  Company Number: US-AMGEN-USASP2014006137

PATIENT
  Age: 62 Year
  Sex: Female
  Weight: 50.79 kg

DRUGS (6)
  1. PROLIA [Suspect]
     Indication: OSTEOPOROSIS POSTMENOPAUSAL
     Dosage: 60 MG X 1
     Route: 058
     Dates: start: 20131227
  2. FIORICET [Concomitant]
     Indication: PAIN
     Dosage: 40 G, ONCE
     Route: 048
  3. NEXIUM                             /01479302/ [Concomitant]
     Indication: GASTROOESOPHAGEAL REFLUX DISEASE
     Dosage: 40 G, BID
     Route: 048
  4. LEVBID [Concomitant]
     Indication: IRRITABLE BOWEL SYNDROME
     Dosage: 0.375 G, Q/20
     Route: 048
  5. ATENOLOL [Concomitant]
     Indication: HYPERTENSION
     Dosage: 50 G, QD
     Route: 048
  6. VALIUM [Concomitant]
     Indication: BACK PAIN
     Dosage: 5 MG, QID
     Route: 048

REACTIONS (9)
  - Blood calcium abnormal [Unknown]
  - Asthenia [Recovered/Resolved]
  - Feeling abnormal [Unknown]
  - Butterfly rash [Recovered/Resolved]
  - Vomiting [Recovered/Resolved]
  - Dizziness [Recovered/Resolved]
  - Gait disturbance [Recovered/Resolved]
  - Aura [Recovered/Resolved]
  - Bone pain [Recovered/Resolved]
